FAERS Safety Report 7920307-0 (Version None)
Quarter: 2011Q4

REPORT INFORMATION
  Report Type: 
  Country: None (occurrence: None)
  Receive Date: 20111117
  Receipt Date: 20111107
  Transmission Date: 20120403
  Serious: Yes (Hospitalization, Other)
  Sender: FDA-Public Use
  Company Number: US-BAXTER-2011BH031883

PATIENT
  Sex: Male

DRUGS (2)
  1. HEPARIN [Suspect]
     Indication: BLOOD FIBRINOGEN ABNORMAL
     Route: 065
  2. DIANEAL [Suspect]
     Indication: PERITONEAL DIALYSIS
     Route: 033

REACTIONS (4)
  - PALATAL DISORDER [None]
  - MOUTH HAEMORRHAGE [None]
  - LIVER DISORDER [None]
  - BLOOD FIBRINOGEN ABNORMAL [None]
